FAERS Safety Report 9426707 (Version 2)
Quarter: 2013Q3

REPORT INFORMATION
  Report Type: Report from Study
  Country: CA (occurrence: CA)
  Receive Date: 20130730
  Receipt Date: 20130807
  Transmission Date: 20140515
  Serious: Yes (Death, Hospitalization)
  Sender: FDA-Public Use
  Company Number: CA-JNJFOC-20130715925

PATIENT
  Age: 74 Year
  Sex: Male
  Weight: 69 kg

DRUGS (11)
  1. REMICADE [Suspect]
     Indication: CROHN^S DISEASE
     Route: 042
     Dates: start: 20090713, end: 20130524
  2. HYDROCORTISONE [Concomitant]
     Indication: PREMEDICATION
     Route: 065
  3. B 12 [Concomitant]
     Route: 030
  4. ANDROGEL [Concomitant]
     Route: 048
  5. FOLIC ACID [Concomitant]
     Route: 048
  6. FENOFIBRATE [Concomitant]
     Route: 048
  7. MICARDIS [Concomitant]
     Route: 048
  8. CALTRATE [Concomitant]
     Route: 048
  9. METOPROLOL [Concomitant]
     Route: 048
  10. NORVASC [Concomitant]
     Route: 048
  11. VITAMIN D [Concomitant]
     Route: 048

REACTIONS (1)
  - Cerebrovascular accident [Fatal]
